FAERS Safety Report 8926124 (Version 1)
Quarter: 2012Q4

REPORT INFORMATION
  Report Type: Report from Study
  Country: CA (occurrence: CA)
  Receive Date: 20121126
  Receipt Date: 20121126
  Transmission Date: 20130627
  Serious: Yes (Other)
  Sender: FDA-Public Use
  Company Number: CA-JNJFOC-20121109535

PATIENT
  Age: 37 Year
  Sex: Male
  Weight: 127.8 kg

DRUGS (1)
  1. REMICADE [Suspect]
     Indication: CROHN^S DISEASE
     Dosage: 25th infusion to date
     Route: 042

REACTIONS (2)
  - Renal artery stenosis [Unknown]
  - Blood pressure increased [Unknown]
